FAERS Safety Report 4808052-1 (Version None)
Quarter: 2005Q4

REPORT INFORMATION
  Report Type: 
  Country: None (occurrence: None)
  Receive Date: 20051021
  Receipt Date: 20051010
  Transmission Date: 20060501
  Serious: Yes (Death)
  Sender: FDA-Public Use
  Company Number: MK200510-0090-1

PATIENT
  Age: 55 Year
  Sex: Male

DRUGS (1)
  1. MORPHINE SULFATE OS CONCENTRATE 20MG/ ML, 15ML [Suspect]
     Indication: DYSPNOEA
     Dosage: 5-10MG, ONE TIME
     Dates: start: 20051008, end: 20051008

REACTIONS (1)
  - MOUTH INJURY [None]
